FAERS Safety Report 8858590 (Version 3)
Quarter: 2012Q4

REPORT INFORMATION
  Report Type: 
  Country: ES (occurrence: ES)
  Receive Date: 20121024
  Receipt Date: 20121031
  Transmission Date: 20130627
  Serious: Yes (Hospitalization)
  Sender: FDA-Public Use
  Company Number: ES-GILEAD-2012-0063273

PATIENT
  Age: 47 Year
  Sex: Male

DRUGS (3)
  1. TRUVADA [Suspect]
     Indication: HIV INFECTION CDC CATEGORY B2
     Dosage: 200 mg, QD
     Route: 048
     Dates: start: 20120216, end: 20120222
  2. PREZISTA [Suspect]
     Indication: HIV INFECTION CDC CATEGORY B2
     Dosage: 400 mg, BID
     Route: 048
     Dates: start: 20120216, end: 20120222
  3. NORVIR [Suspect]
     Indication: HIV INFECTION CDC CATEGORY B2
     Dosage: 100 mg, QD
     Route: 048
     Dates: start: 20120216, end: 20120222

REACTIONS (5)
  - Schizophrenia [Not Recovered/Not Resolved]
  - Psychiatric decompensation [Not Recovered/Not Resolved]
  - Vomiting [Recovered/Resolved]
  - Diarrhoea [Recovered/Resolved]
  - Abdominal pain [Recovered/Resolved]
